FAERS Safety Report 5973163-4 (Version None)
Quarter: 2008Q4

REPORT INFORMATION
  Report Type: 
  Country: None (occurrence: None)
  Receive Date: 20081201
  Receipt Date: 20081120
  Transmission Date: 20090506
  Serious: Yes (Hospitalization)
  Sender: FDA-Public Use
  Company Number: US-BAXTER-2008BH012838

PATIENT
  Age: 59 Year
  Sex: Female

DRUGS (1)
  1. DIANEAL [Suspect]
     Indication: RENAL FAILURE CHRONIC
     Route: 033

REACTIONS (3)
  - ACUTE RESPIRATORY FAILURE [None]
  - ARRHYTHMIA [None]
  - ASTHENIA [None]
